FAERS Safety Report 4697445-1 (Version None)
Quarter: 2005Q2

REPORT INFORMATION
  Report Type: 
  Country: None (occurrence: None)
  Receive Date: 20050621
  Receipt Date: 20050602
  Transmission Date: 20051028
  Serious: Yes (Hospitalization, Other)
  Sender: FDA-Public Use
  Company Number: USA050496634

PATIENT
  Age: 74 Year
  Sex: Female
  Weight: 56 kg

DRUGS (17)
  1. FORTEO [Suspect]
     Indication: OSTEOPOROSIS
     Dosage: 20 UG DAY
     Dates: start: 20020101, end: 20050426
  2. HUMALOG [Suspect]
     Indication: DIABETES MELLITUS INSULIN-DEPENDENT
  3. INSULIN [Suspect]
     Indication: DIABETES MELLITUS INSULIN-DEPENDENT
  4. QUININE SULFATE [Concomitant]
  5. POTASSIUM CHLORIDE [Concomitant]
  6. LIPITOR [Concomitant]
  7. ZOCOR [Concomitant]
  8. EZETIMIBE [Concomitant]
  9. IMDUR [Concomitant]
  10. CLONIDINE [Concomitant]
  11. LASIX [Concomitant]
  12. ENTERIC ASPIRIN (ACETYLSALICYLIC ACID) [Concomitant]
  13. DIGITEX (DIGOXIN) [Concomitant]
  14. FEXOFENADINE HCL [Concomitant]
  15. COUMADIN [Concomitant]
  16. LANTUS [Concomitant]
  17. VYTORIN [Concomitant]

REACTIONS (12)
  - BLOOD GLUCOSE INCREASED [None]
  - CYSTITIS [None]
  - HYPOTENSION [None]
  - LOSS OF CONSCIOUSNESS [None]
  - MUSCLE SPASMS [None]
  - NAUSEA [None]
  - PNEUMONIA [None]
  - PRURITUS [None]
  - RASH GENERALISED [None]
  - SYNCOPE [None]
  - VOMITING [None]
  - WEIGHT DECREASED [None]
